FAERS Safety Report 6831157-0 (Version None)
Quarter: 2010Q3

REPORT INFORMATION
  Report Type: 
  Country: None (occurrence: None)
  Receive Date: 20100712
  Receipt Date: 20100701
  Transmission Date: 20110219
  Serious: Yes (Hospitalization)
  Sender: FDA-Public Use
  Company Number: US-AMGEN-KDC421746

PATIENT
  Age: 53 Year
  Sex: Male

DRUGS (3)
  1. ENBREL [Suspect]
     Indication: GRAFT VERSUS HOST DISEASE
  2. FLUDARABINE PHOSPHATE [Concomitant]
  3. BUSULFAN [Concomitant]

REACTIONS (1)
  - DEEP VEIN THROMBOSIS [None]
